FAERS Safety Report 6210860-X (Version None)
Quarter: 2009Q2

REPORT INFORMATION
  Report Type: 
  Country: None (occurrence: None)
  Receive Date: 20090601
  Receipt Date: 20090526
  Transmission Date: 20091009
  Serious: Yes (Hospitalization)
  Sender: FDA-Public Use
  Company Number: JP-AMGEN-US333180

PATIENT
  Sex: Female
  Weight: 45 kg

DRUGS (6)
  1. ENBREL [Suspect]
     Indication: RHEUMATOID ARTHRITIS
     Route: 058
     Dates: start: 20080711, end: 20081219
  2. ENBREL [Suspect]
     Dosage: UNSPECIFIED DOSE FORM, 25 MG X 2/WEEK
     Route: 058
     Dates: start: 20080317, end: 20080601
  3. PREDONINE [Suspect]
     Indication: RHEUMATOID ARTHRITIS
     Route: 048
     Dates: start: 20060307, end: 20081229
  4. RHEUMATREX [Suspect]
     Indication: RHEUMATOID ARTHRITIS
     Route: 048
     Dates: start: 20060307, end: 20081229
  5. TAKEPRON [Concomitant]
     Indication: REFLUX OESOPHAGITIS
     Route: 048
     Dates: start: 20060307, end: 20081229
  6. HYPEN [Concomitant]
     Indication: RHEUMATOID ARTHRITIS
     Route: 048
     Dates: start: 20070719, end: 20081229

REACTIONS (3)
  - ABDOMINAL PAIN [None]
  - DRUG ERUPTION [None]
  - PULMONARY TUBERCULOSIS [None]
